FAERS Safety Report 9531278 (Version 1)
Quarter: 2013Q3

REPORT INFORMATION
  Report Type: Spontaneous
  Country: US (occurrence: None)
  Receive Date: 20130916
  Receipt Date: 20130916
  Transmission Date: 20140515
  Serious: Yes (Other)
  Sender: FDA-Public Use
  Company Number: None

PATIENT
  Age: 69 Year
  Sex: Female
  Weight: 54.43 kg

DRUGS (1)
  1. ALENDRONATE 70MG NORTHSTAR [Suspect]
     Indication: OSTEOPOROSIS
     Dosage: ONE TIME ONE A WEEK, 70MG TAKEN BY MOUTH
     Route: 048

REACTIONS (5)
  - Dyspepsia [None]
  - Gastric ulcer [None]
  - Hernia [None]
  - Weight decreased [None]
  - Abdominal pain upper [None]
